FAERS Safety Report 8916366 (Version 1)
Quarter: 2012Q4

REPORT INFORMATION
  Report Type: 
  Country: US (occurrence: US)
  Receive Date: 20121120
  Receipt Date: 20121120
  Transmission Date: 20130627
  Serious: No
  Sender: FDA-Public Use
  Company Number: US-ASTRAZENECA-2012SE85242

PATIENT
  Age: 35 Year
  Sex: Female
  Weight: 111.1 kg

DRUGS (4)
  1. NEXIUM [Suspect]
     Indication: GASTROOESOPHAGEAL REFLUX DISEASE
     Route: 048
     Dates: start: 20121013
  2. BENTYL [Concomitant]
     Indication: IRRITABLE BOWEL SYNDROME
  3. FISH OIL [Concomitant]
  4. MEDROL [Concomitant]

REACTIONS (3)
  - Muscle strain [Recovering/Resolving]
  - Dyspepsia [Not Recovered/Not Resolved]
  - Drug ineffective [Unknown]
